FAERS Safety Report 16690629 (Version 2)
Quarter: 2020Q1

REPORT INFORMATION
  Report Type: Spontaneous
  Country: JP (occurrence: JP)
  Receive Date: 20190810
  Receipt Date: 20200115
  Transmission Date: 20200409
  Serious: Yes (Death, Other)
  Sender: FDA-Public Use
  Company Number: JP-009507513-1908JPN000751J

PATIENT
  Age: 71 Year
  Sex: Male
  Weight: 46 kg

DRUGS (16)
  1. OXYCODONE HYDROCHLORIDE. [Concomitant]
     Active Substance: OXYCODONE HYDROCHLORIDE
     Indication: CANCER PAIN
     Dosage: 40 MILLIGRAM, BID
     Route: 048
     Dates: start: 20190708, end: 20190722
  2. LINZESS [Concomitant]
     Active Substance: LINACLOTIDE
     Indication: CONSTIPATION
     Dosage: 0.25 MILLIGRAM, QD
     Route: 048
     Dates: start: 20190708, end: 20190722
  3. GASTER [Concomitant]
     Active Substance: FAMOTIDINE
     Indication: PREMEDICATION
     Dosage: 20 MILLIGRAM, QD
     Route: 042
     Dates: start: 20190711, end: 20190711
  4. DEXART [Concomitant]
     Active Substance: DEXAMETHASONE SODIUM PHOSPHATE
     Indication: PREMEDICATION
     Dosage: 19.8 MILLIGRAM, QD
     Route: 042
     Dates: start: 20190711, end: 20190711
  5. CARBOPLATIN. [Concomitant]
     Active Substance: CARBOPLATIN
     Indication: NON-SMALL CELL LUNG CANCER
     Dosage: 370 MILLIGRAM, Q3W
     Route: 051
     Dates: start: 20190711, end: 20190711
  6. KEYTRUDA [Suspect]
     Active Substance: PEMBROLIZUMAB
     Indication: NON-SMALL CELL LUNG CANCER
     Dosage: 200 MILLIGRAM, Q3W
     Route: 041
     Dates: start: 20190711, end: 20190711
  7. OXINORM [Concomitant]
     Indication: CANCER PAIN
     Dosage: 10 MILLIGRAM, PRN
     Route: 048
     Dates: start: 20190708, end: 20190722
  8. POLARAMINE [Concomitant]
     Active Substance: DEXCHLORPHENIRAMINE MALEATE
     Indication: PREMEDICATION
     Dosage: 5 MILLIGRAM, QD
     Route: 042
     Dates: start: 20190711, end: 20190711
  9. FLUITRAN [Concomitant]
     Active Substance: TRICHLORMETHIAZIDE
     Indication: HYPERTENSION
     Dosage: 1 MILLIGRAM, QD
     Route: 048
     Dates: end: 20190722
  10. EMEND [Concomitant]
     Active Substance: APREPITANT
     Dosage: 80 MILLIGRAM, QD
     Route: 048
     Dates: start: 20190712, end: 20190713
  11. MAGNESIUM OXIDE. [Concomitant]
     Active Substance: MAGNESIUM OXIDE
     Indication: CONSTIPATION
     Dosage: 500 MILLIGRAM, TID
     Route: 048
     Dates: start: 20190710, end: 20190722
  12. PACLITAXEL. [Concomitant]
     Active Substance: PACLITAXEL
     Indication: NON-SMALL CELL LUNG CANCER
     Dosage: 295 MILLIGRAM, Q3W
     Route: 051
     Dates: start: 20190711, end: 20190711
  13. EMEND [Concomitant]
     Active Substance: APREPITANT
     Indication: VOMITING
     Dosage: 125 MILLIGRAM, QD
     Route: 048
     Dates: start: 20190711, end: 20190711
  14. DECADRON [Concomitant]
     Active Substance: DEXAMETHASONE
     Indication: VOMITING
     Dosage: 4 MILLIGRAM, QD
     Route: 048
     Dates: start: 20190712, end: 20190713
  15. SYMPROIC [Concomitant]
     Active Substance: NALDEMEDINE
     Indication: CONSTIPATION
     Dosage: 0.2 MILLIGRAM, QD
     Route: 048
     Dates: start: 20190708, end: 20190722
  16. IRBESARTAN. [Concomitant]
     Active Substance: IRBESARTAN
     Indication: HYPERTENSION
     Dosage: 100 MILLIGRAM, QD
     Route: 048
     Dates: end: 20190722

REACTIONS (1)
  - Interstitial lung disease [Fatal]

NARRATIVE: CASE EVENT DATE: 20190712
